FAERS Safety Report 5528810-8 (Version None)
Quarter: 2007Q4

REPORT INFORMATION
  Report Type: 
  Country: None (occurrence: None)
  Receive Date: 20071119
  Receipt Date: 20070312
  Transmission Date: 20080405
  Serious: Yes (Other)
  Sender: FDA-Public Use
  Company Number: 35197

PATIENT
  Age: 60 Year
  Sex: Male
  Weight: 99 kg

DRUGS (1)
  1. CHLOROPROCAINE INJ. USP 2% 400MG/20ML - BEDFORD LABS, INC. [Suspect]
     Indication: SPINAL ANAESTHESIA
     Dosage: 40MG
     Dates: start: 20070219

REACTIONS (1)
  - DRUG INEFFECTIVE [None]
